FAERS Safety Report 23015051 (Version 2)
Quarter: 2025Q4

REPORT INFORMATION
  Report Type: Spontaneous
  Country: US (occurrence: US)
  Receive Date: 20231002
  Receipt Date: 20251110
  Transmission Date: 20260118
  Serious: Yes (Hospitalization, Other)
  Sender: CATALYST PHARMA
  Company Number: US-CATALYST PHARMACEUTICALS, INC-US-CATA-23-00096

PATIENT
  Age: 66 Year
  Sex: Female
  Weight: 77.5 kg

DRUGS (45)
  1. FIRDAPSE [Suspect]
     Active Substance: AMIFAMPRIDINE PHOSPHATE
     Indication: Myasthenic syndrome
     Dosage: 1 TABLET (10 MG) 4-5 TIMES A DAY
     Route: 048
     Dates: start: 20190206, end: 2019
  2. FIRDAPSE [Suspect]
     Active Substance: AMIFAMPRIDINE PHOSPHATE
     Dosage: 1.5 TABLETS 5 TIMES PER DAY
     Route: 048
     Dates: start: 20190522
  3. FIRDAPSE [Suspect]
     Active Substance: AMIFAMPRIDINE PHOSPHATE
     Dosage: 2 TABLETS IN THE MORNING, 1.5 TABLETS FOUR  TIMES A DAY (80 MG DAILY)
     Route: 048
     Dates: start: 20231024
  4. FIRDAPSE [Suspect]
     Active Substance: AMIFAMPRIDINE PHOSPHATE
     Dosage: 2 TABLETS EVERY 4 HOURS DURING DAY AND 1 TABLET AT NIGHT FOR A TOTAL 9 TABLETS
     Route: 048
  5. CALCIUM\VITAMIN D [Concomitant]
     Active Substance: CALCIUM\VITAMIN D
     Indication: Hypovitaminosis
     Dosage: 1200/800MG DAILY
     Route: 065
  6. VITAMINS [Concomitant]
     Active Substance: VITAMINS
     Indication: Hypovitaminosis
     Dosage: 1 DOSAGE FORM, QD
     Route: 065
  7. PANTOPRAZOLE [Concomitant]
     Active Substance: PANTOPRAZOLE
     Indication: Gastrooesophageal reflux disease
     Dosage: 20 MG, QD
     Route: 065
  8. PREDNISONE [Concomitant]
     Active Substance: PREDNISONE
     Indication: Myasthenic syndrome
     Dosage: 7.5 MG EVERY OTHER DAY
     Route: 065
  9. PREDNISONE [Concomitant]
     Active Substance: PREDNISONE
     Dosage: 10 MG EVERY OTHER DAY
     Route: 065
  10. PYRIDOSTIGMINE [Concomitant]
     Active Substance: PYRIDOSTIGMINE
     Indication: Myasthenic syndrome
     Dosage: 60 MG FOUR TIMES A DAY
     Route: 065
  11. PYRIDOSTIGMINE BROMIDE [Concomitant]
     Active Substance: PYRIDOSTIGMINE BROMIDE
     Indication: Myasthenic syndrome
     Dosage: 180 MG AT BEDTIME
     Route: 065
  12. SELENIUM [Concomitant]
     Active Substance: SELENIUM
     Indication: Immune disorder prophylaxis
     Dosage: 200 MCG, QD
     Route: 065
  13. TYLENOL [Concomitant]
     Active Substance: ACETAMINOPHEN
     Indication: Headache
     Dosage: 500 MG AS NEED
     Route: 065
  14. VITAMIN B COMPLEX [Concomitant]
     Active Substance: CYANOCOBALAMIN\DEXPANTHENOL\NIACINAMIDE\PYRIDOXINE HYDROCHLORIDE\RIBOFLAVIN 5^-PHOSPHATE SODIUM\THIA
     Indication: Hypovitaminosis
     Dosage: 1 TABLET DAILY
     Route: 065
  15. VITAMIN C [Concomitant]
     Active Substance: ASCORBIC ACID
     Indication: Hypovitaminosis
     Dosage: 1000 MG, QD
     Route: 065
  16. VITAMIN D3 [Concomitant]
     Active Substance: CHOLECALCIFEROL
     Indication: Hypovitaminosis
     Dosage: 5000 UNITS DAILY
     Route: 065
  17. POTASSIUM CHLORIDE [Concomitant]
     Active Substance: POTASSIUM CHLORIDE
     Indication: Hypokalaemia
     Dosage: 10 MILLIEQUIVALENT, QD
     Route: 065
  18. POTASSIUM CHLORIDE [Concomitant]
     Active Substance: POTASSIUM CHLORIDE
     Dosage: 20 MEQ
     Route: 065
  19. CALCIUM POLYCARBOPHIL [Concomitant]
     Active Substance: CALCIUM POLYCARBOPHIL
     Indication: Product used for unknown indication
     Dosage: 625 MILLIGRAM, QD
     Route: 065
  20. BLACK RASPBERRY EXTRACT [Concomitant]
     Indication: Immune disorder prophylaxis
     Dosage: 1 CAPSULE DAILY
     Route: 065
  21. HERBALS [Concomitant]
     Active Substance: HERBALS
     Indication: Immune disorder prophylaxis
     Dosage: 500 MG DAILY
     Route: 065
  22. DIETARY SUPPLEMENT [Concomitant]
     Active Substance: DIETARY SUPPLEMENT
     Indication: Product used for unknown indication
     Dosage: 500 MILLIGRAM, QD
     Route: 065
  23. LOPERAMIDE [Concomitant]
     Active Substance: LOPERAMIDE
     Indication: Diarrhoea
     Dosage: 2 MILLIGRAM, PRN
     Route: 065
  24. DIETARY SUPPLEMENT\RESVERATROL [Concomitant]
     Active Substance: DIETARY SUPPLEMENT\RESVERATROL
     Indication: Product used for unknown indication
     Dosage: 60 MILLIGRAM, QD
     Route: 065
  25. ULTRA OMEGA 3 [Concomitant]
     Indication: Product used for unknown indication
     Dosage: 2 GRAM, QD
     Route: 065
  26. CURCUMIN PHYTOSOME [Concomitant]
     Indication: Product used for unknown indication
     Dosage: 500 MILLIGRAM, QD
     Route: 065
  27. VITAMIN E [Concomitant]
     Active Substance: .ALPHA.-TOCOPHEROL
     Indication: Hypovitaminosis
     Dosage: 500 UNITS DAILY
     Route: 065
  28. VITAMIN E [Concomitant]
     Active Substance: .ALPHA.-TOCOPHEROL
     Dosage: 1000 UNITS DAILY
     Route: 065
  29. FOLIC ACID [Concomitant]
     Active Substance: FOLIC ACID
     Indication: Product used for unknown indication
     Dosage: 1080 MICROGRAM, QD
     Route: 065
  30. ZINC PICOLINATE [Concomitant]
     Active Substance: ZINC PICOLINATE
     Indication: Product used for unknown indication
     Dosage: 30 MILLIGRAM, QD
     Route: 065
  31. VITAMIN A [Concomitant]
     Active Substance: VITAMIN A
     Indication: Product used for unknown indication
     Dosage: 25000 INTERNATIONAL UNIT, QD
     Route: 065
  32. CALCIUM CITRATE [Concomitant]
     Active Substance: CALCIUM CITRATE
     Indication: Product used for unknown indication
     Dosage: 13000 MILLIGRAM, QD
     Route: 065
  33. ASPIRIN [Concomitant]
     Active Substance: ASPIRIN
     Indication: Product used for unknown indication
     Dosage: 80 MILLIGRAM, UNK
     Route: 065
  34. MELATONIN [Concomitant]
     Active Substance: MELATONIN
     Indication: Sleep disorder
     Dosage: 5 MG AS NEEDED
     Route: 065
  35. PYRIDOSTIGMINE BROMIDE [Concomitant]
     Active Substance: PYRIDOSTIGMINE BROMIDE
     Indication: Myasthenic syndrome
     Dosage: 60 MG FOUR TIMES A DAY
     Route: 065
  36. POTASSIUM CHLORIDE CRYSTAL EXTENDED RELEASE [Concomitant]
     Indication: Hypokalaemia
     Dosage: 20 MEQ DAILY
     Route: 065
  37. SACCHAROMYCES CEREVISIAE [Concomitant]
     Active Substance: SACCHAROMYCES CEREVISIAE
     Indication: Gastrointestinal disorder prophylaxis
     Dosage: 250 MG DAILY
     Route: 065
  38. CRANBERRY CONCENTRATE [Concomitant]
     Active Substance: CRANBERRY CONCENTRATE
     Indication: Immune disorder prophylaxis
     Dosage: 500 MG DAILY
     Route: 065
  39. ZINC [Concomitant]
     Active Substance: ZINC
     Indication: Immune disorder prophylaxis
     Dosage: 50 MG DAILY
     Route: 065
  40. APPLE CIDER VINEGAR [Concomitant]
     Active Substance: APPLE CIDER VINEGAR
     Indication: Immune disorder prophylaxis
     Dosage: 300 MG DAILY
     Route: 065
  41. PRIVIGEN [Concomitant]
     Active Substance: HUMAN IMMUNOGLOBULIN G
     Indication: Myasthenic syndrome
     Dosage: 30 GRAMS PER 300 ML EVERY FOUR WEEKS
     Route: 065
  42. PRIVIGEN [Concomitant]
     Active Substance: HUMAN IMMUNOGLOBULIN G
     Dosage: 30 MG  EVERY 5 WEEKS
     Route: 065
  43. GARLIC [Concomitant]
     Active Substance: GARLIC
     Indication: Cardiovascular event prophylaxis
     Dosage: 500 MG DAILY
     Route: 065
  44. ALPRAZOLAM [Concomitant]
     Active Substance: ALPRAZOLAM
     Indication: Anxiety
     Dosage: 0.25 MG AS NEEDED
     Route: 065
  45. ZOLOFT [Concomitant]
     Active Substance: SERTRALINE HYDROCHLORIDE
     Indication: Depression
     Dosage: 25 MG
     Route: 065

REACTIONS (6)
  - Food poisoning [Recovered/Resolved]
  - Cholecystectomy [Recovered/Resolved]
  - Pneumonia [Recovered/Resolved]
  - Therapeutic product effect delayed [Unknown]
  - Product substitution issue [Unknown]
  - Drug ineffective [Unknown]

NARRATIVE: CASE EVENT DATE: 20200801
